FAERS Safety Report 9699587 (Version 2)
Quarter: 2013Q4

REPORT INFORMATION
  Report Type: Report from Study
  Country: PR (occurrence: PR)
  Receive Date: 20131120
  Receipt Date: 20131120
  Transmission Date: 20140711
  Serious: Yes (Other)
  Sender: FDA-Public Use
  Company Number: PR-ABBVIE-13P-131-1136540-00

PATIENT
  Age: 58 Year
  Sex: Female
  Weight: 52.66 kg

DRUGS (1)
  1. HUMIRA [Suspect]
     Indication: RHEUMATOID ARTHRITIS
     Route: 058
     Dates: end: 201310

REACTIONS (7)
  - Intestinal anastomosis [Recovered/Resolved]
  - Injection site erythema [Recovered/Resolved]
  - Injection site induration [Recovered/Resolved]
  - Skin warm [Recovered/Resolved]
  - Nasopharyngitis [Not Recovered/Not Resolved]
  - Drug intolerance [Unknown]
  - Ileostomy closure [Recovered/Resolved]
